FAERS Safety Report 17407866 (Version 3)
Quarter: 2020Q1

REPORT INFORMATION
  Report Type: Report from Study
  Country: MX (occurrence: MX)
  Receive Date: 20200212
  Receipt Date: 20200219
  Transmission Date: 20200409
  Serious: Yes (Other)
  Sender: FDA-Public Use
  Company Number: NVSC2020MX036206

PATIENT
  Sex: Female
  Weight: 86 kg

DRUGS (4)
  1. TRILEPTAL [Suspect]
     Active Substance: OXCARBAZEPINE
     Dosage: 6 DF (300 MG), QD
     Route: 065
     Dates: start: 201902, end: 201902
  2. TRILEPTAL [Suspect]
     Active Substance: OXCARBAZEPINE
     Dosage: 1 DF (600 MG), TID
     Route: 048
     Dates: start: 200905
  3. TRILEPTAL [Suspect]
     Active Substance: OXCARBAZEPINE
     Dosage: 5 (600 MG), TWO IN THE MORNING, TWO IN THE AFTERNOON AND ONE AT NIGHT
     Route: 048
     Dates: start: 2013
  4. TRILEPTAL [Suspect]
     Active Substance: OXCARBAZEPINE
     Indication: EPILEPSY
     Dosage: 300 MG, QD
     Route: 048
     Dates: start: 2009

REACTIONS (5)
  - Wrong technique in product usage process [Unknown]
  - Ear pain [Unknown]
  - Papillary thyroid cancer [Unknown]
  - Vomiting [Unknown]
  - Dizziness [Unknown]
